FAERS Safety Report 9517300 (Version 1)
Quarter: 2013Q3

REPORT INFORMATION
  Report Type: Spontaneous
  Country: US (occurrence: US)
  Receive Date: 20130911
  Receipt Date: 20130911
  Transmission Date: 20140515
  Serious: No
  Sender: FDA-Public Use
  Company Number: US-ASTRAZENECA-2013SE59126

PATIENT
  Age: 74 Year
  Sex: Female

DRUGS (4)
  1. SYMBICORT [Suspect]
     Indication: BRONCHITIS
     Dosage: 160/4.5MCG 2 PUFFS TWICE DAILY
     Route: 055
     Dates: start: 20130728, end: 20130729
  2. PROGESTERONE [Concomitant]
     Dates: start: 1983
  3. ESTRADIOL [Concomitant]
     Dates: start: 1983
  4. VITAMINS [Concomitant]

REACTIONS (7)
  - Sinus disorder [Unknown]
  - Abdominal discomfort [Unknown]
  - Rhinorrhoea [Unknown]
  - Nasal congestion [Unknown]
  - Gastric disorder [Unknown]
  - Increased bronchial secretion [Unknown]
  - Intentional drug misuse [Unknown]
